FAERS Safety Report 5748242-7 (Version None)
Quarter: 2008Q2

REPORT INFORMATION
  Report Type: 
  Country: None (occurrence: None)
  Receive Date: 20080523
  Receipt Date: 20080516
  Transmission Date: 20081010
  Serious: Yes (Other)
  Sender: FDA-Public Use
  Company Number: US-PFIZER INC-2008024257

PATIENT
  Sex: Female
  Weight: 78.5 kg

DRUGS (8)
  1. CELEBREX [Suspect]
     Indication: BACK PAIN
     Route: 048
  2. CLARINEX [Concomitant]
  3. MONTELUKAST SODIUM [Concomitant]
  4. NEXIUM [Concomitant]
  5. CADUET [Concomitant]
  6. FLOVENT [Concomitant]
  7. ALBUTEROL [Concomitant]
  8. TRAMADOL HCL [Concomitant]

REACTIONS (1)
  - ASTHMA [None]
